FAERS Safety Report 8287298-7 (Version None)
Quarter: 2012Q2

REPORT INFORMATION
  Report Type: 
  Country: None (occurrence: None)
  Receive Date: 20120416
  Receipt Date: 20120416
  Transmission Date: 20120825
  Serious: No
  Sender: FDA-Public Use
  Company Number: None

PATIENT
  Age: 42 Year
  Sex: Female
  Weight: 81.646 kg

DRUGS (1)
  1. DULOXETINE HYDROCHLORIDE [Suspect]
     Indication: NEURALGIA
     Dosage: 30MG
     Route: 048
     Dates: start: 20100801, end: 20120406

REACTIONS (14)
  - ANXIETY [None]
  - SPEECH DISORDER [None]
  - AGGRESSION [None]
  - NIGHT SWEATS [None]
  - DIARRHOEA [None]
  - PALPITATIONS [None]
  - IMPAIRED WORK ABILITY [None]
  - COLD SWEAT [None]
  - VISUAL IMPAIRMENT [None]
  - DRUG WITHDRAWAL SYNDROME [None]
  - MALAISE [None]
  - VERTIGO [None]
  - DEPRESSION [None]
  - THINKING ABNORMAL [None]
